FAERS Safety Report 9928321 (Version 1)
Quarter: 2014Q1

REPORT INFORMATION
  Report Type: Spontaneous
  Country: US (occurrence: US)
  Receive Date: 20140227
  Receipt Date: 20140227
  Transmission Date: 20141002
  Serious: No
  Sender: FDA-Public Use
  Company Number: US-BAYER-2014-026468

PATIENT
  Age: 56 Year
  Sex: Male
  Weight: 84 kg

DRUGS (4)
  1. ALEVE CAPLET [Suspect]
     Indication: ANALGESIC THERAPY
     Dosage: UNK
     Route: 048
     Dates: end: 20140214
  2. SYNTHROID [Concomitant]
  3. MINOCYCLINE [Concomitant]
  4. NIACIN [Concomitant]

REACTIONS (5)
  - Lip swelling [Recovered/Resolved]
  - Lip swelling [Recovered/Resolved]
  - Swelling face [Not Recovered/Not Resolved]
  - Dysphonia [Not Recovered/Not Resolved]
  - Swelling face [Not Recovered/Not Resolved]
